FAERS Safety Report 9505908 (Version 1)
Quarter: 2013Q1

REPORT INFORMATION
  Report Type: Spontaneous
  Country: US (occurrence: None)
  Receive Date: 20130219
  Receipt Date: 20130219
  Transmission Date: 20140127
  Serious: Yes (Other)
  Sender: FDA-Public Use
  Company Number: 071398

PATIENT
  Sex: Female

DRUGS (5)
  1. LACOSAMIDE [Suspect]
     Dates: start: 20120921
  2. FOLIC ACID [Concomitant]
  3. LAMICTAL [Concomitant]
  4. ZOLOFT [Concomitant]
  5. CARBAMAZEPINE [Concomitant]

REACTIONS (1)
  - Angioedema [None]
